FAERS Safety Report 19203930 (Version 1)
Quarter: 2021Q2

REPORT INFORMATION
  Report Type: Spontaneous
  Country: CN (occurrence: CN)
  Receive Date: 20210503
  Receipt Date: 20210503
  Transmission Date: 20210717
  Serious: Yes (Other)
  Sender: FDA-Public Use
  Company Number: CN-ROCHE-2818666

PATIENT
  Age: 58 Year
  Sex: Female

DRUGS (10)
  1. DABRAFENIB [Concomitant]
     Active Substance: DABRAFENIB
     Indication: ADENOCARCINOMA OF COLON
     Dates: start: 20200702
  2. IRINOTECAN [Concomitant]
     Active Substance: IRINOTECAN
     Indication: ADENOCARCINOMA OF COLON
     Dates: start: 20191215
  3. AVASTIN [Suspect]
     Active Substance: BEVACIZUMAB
     Route: 065
     Dates: start: 20191215
  4. XELODA [Suspect]
     Active Substance: CAPECITABINE
     Route: 065
     Dates: start: 20191215
  5. OXALIPLATIN. [Concomitant]
     Active Substance: OXALIPLATIN
     Indication: ADENOCARCINOMA OF COLON
     Dates: start: 20191030
  6. REGORAFENIB. [Concomitant]
     Active Substance: REGORAFENIB
     Indication: ADENOCARCINOMA OF COLON
     Dosage: PD1 COMBINED WITH REGORAFENIB REGIMEN
     Dates: start: 20200606
  7. CETUXIMAB. [Concomitant]
     Active Substance: CETUXIMAB
     Indication: ADENOCARCINOMA OF COLON
     Dates: start: 20200702
  8. AVASTIN [Suspect]
     Active Substance: BEVACIZUMAB
     Indication: ADENOCARCINOMA OF COLON
     Route: 065
     Dates: start: 20191030
  9. XELODA [Suspect]
     Active Substance: CAPECITABINE
     Indication: ADENOCARCINOMA OF COLON
     Route: 065
     Dates: start: 20191030
  10. TRAMETINIB [Concomitant]
     Active Substance: TRAMETINIB
     Indication: ADENOCARCINOMA OF COLON
     Dates: start: 20200702

REACTIONS (1)
  - Intestinal obstruction [Unknown]
